FAERS Safety Report 4740383-6 (Version None)
Quarter: 2005Q3

REPORT INFORMATION
  Report Type: 
  Country: None (occurrence: None)
  Receive Date: 20050809
  Receipt Date: 20050809
  Transmission Date: 20060218
  Serious: Yes (Death, Hospitalization)
  Sender: FDA-Public Use
  Company Number: None

PATIENT
  Sex: Female
  Weight: 77 kg

DRUGS (7)
  1. METHOTREXATE [Suspect]
     Indication: GLIOBLASTOMA MULTIFORME
     Dosage: SEE IMAGE
     Route: 042
     Dates: start: 20050804, end: 20050804
  2. DEXAMETHASONE [Concomitant]
  3. DILATIN [Concomitant]
  4. FAMOTIDINE [Concomitant]
  5. PHENOBARBITAL [Concomitant]
  6. VALIUM [Concomitant]
  7. ZOFRAN [Concomitant]

REACTIONS (9)
  - BLOOD CREATININE INCREASED [None]
  - COMA [None]
  - CYANOSIS [None]
  - ENCEPHALOPATHY [None]
  - HEPATIC FAILURE [None]
  - HYPOCALCAEMIA [None]
  - NAUSEA [None]
  - TROPONIN I INCREASED [None]
  - VOMITING [None]
